FAERS Safety Report 6156390-5 (Version None)
Quarter: 2009Q2

REPORT INFORMATION
  Report Type: 
  Country: None (occurrence: None)
  Receive Date: 20090416
  Receipt Date: 20090407
  Transmission Date: 20091009
  Serious: Yes (Other)
  Sender: FDA-Public Use
  Company Number: DE-RANBAXY-2009RR-22115

PATIENT
  Age: 62 Year
  Sex: Female

DRUGS (10)
  1. AMOXICILLIN [Suspect]
     Indication: HELICOBACTER GASTRITIS
     Dosage: UNK
     Dates: start: 20070501
  2. CLARITHROMYCIN [Suspect]
     Indication: HELICOBACTER GASTRITIS
     Dosage: UNK
     Dates: start: 20070501
  3. PANTOPRAZOLE SODIUM [Suspect]
     Indication: HELICOBACTER GASTRITIS
     Dosage: UNK
     Dates: start: 20070501
  4. ESOMEPRAZOLE [Concomitant]
  5. LIDOCAINE [Concomitant]
     Dosage: UNK
     Route: 058
     Dates: start: 20070501
  6. ENALAPRIL [Concomitant]
  7. OLMESARTAN [Concomitant]
  8. LEVOTHYROXINE SODIUM [Concomitant]
  9. SIMVASTATIN [Concomitant]
  10. NITROSPRAY [Concomitant]

REACTIONS (1)
  - GASTRITIS [None]
